FAERS Safety Report 6064812-3 (Version None)
Quarter: 2009Q1

REPORT INFORMATION
  Report Type: 
  Country: None (occurrence: None)
  Receive Date: 20090204
  Receipt Date: 20090123
  Transmission Date: 20090719
  Serious: Yes (Other)
  Sender: FDA-Public Use
  Company Number: US-ROCHE-610214

PATIENT
  Sex: Female
  Weight: 64.4 kg

DRUGS (3)
  1. CAPECITABINE [Suspect]
     Indication: BREAST CANCER
     Dosage: RECEIVED 2600 MG IN AM AND 2600 MG IN PM
     Route: 048
     Dates: start: 20081031
  2. AVASTIN [Concomitant]
  3. GEMZAR [Concomitant]

REACTIONS (2)
  - NEOPLASM PROGRESSION [None]
  - PLATELET COUNT DECREASED [None]
